FAERS Safety Report 7600073-9 (Version None)
Quarter: 2011Q3

REPORT INFORMATION
  Report Type: 
  Country: None (occurrence: None)
  Receive Date: 20110711
  Receipt Date: 20110629
  Transmission Date: 20111222
  Serious: Yes (Other)
  Sender: FDA-Public Use
  Company Number: JP-JNJFOC-20110505721

PATIENT
  Sex: Female
  Weight: 46 kg

DRUGS (9)
  1. RIMATIL [Concomitant]
     Indication: RHEUMATOID ARTHRITIS
     Dosage: 200DF PER DAY
     Route: 048
  2. PROTECADIN [Concomitant]
     Dosage: 20 DF PER DAY
  3. ALPRAZOLAM [Concomitant]
     Indication: INSOMNIA
     Dosage: 0.4 DF PER DAY
  4. REMICADE [Suspect]
     Indication: RHEUMATOID ARTHRITIS
     Dosage: TOTAL 12 INFUSIONS
     Route: 042
     Dates: start: 20110510
  5. ACETAMINOPHEN [Concomitant]
     Indication: PROPHYLAXIS
     Route: 048
     Dates: start: 20110509
  6. METHOTREXATE [Concomitant]
     Indication: RHEUMATOID ARTHRITIS
     Route: 048
     Dates: start: 20090328
  7. REMICADE [Suspect]
     Route: 042
     Dates: start: 20091007
  8. ZYRTEC [Concomitant]
     Indication: PROPHYLAXIS
     Route: 048
     Dates: start: 20110509
  9. FOLIC ACID [Concomitant]
     Indication: PROPHYLAXIS
     Dosage: 10DF/W
     Route: 048

REACTIONS (9)
  - MUSCULOSKELETAL STIFFNESS [None]
  - DYSPNOEA [None]
  - MYALGIA [None]
  - HEADACHE [None]
  - OXYGEN SATURATION DECREASED [None]
  - INFUSION RELATED REACTION [None]
  - PYREXIA [None]
  - CONJUNCTIVAL HYPERAEMIA [None]
  - BLOOD PRESSURE DECREASED [None]
